FAERS Safety Report 7823684-4 (Version None)
Quarter: 2011Q4

REPORT INFORMATION
  Report Type: 
  Country: None (occurrence: None)
  Receive Date: 20111019
  Receipt Date: 20111007
  Transmission Date: 20120403
  Serious: Yes (Other)
  Sender: FDA-Public Use
  Company Number: -VALEANT-2011VX002985

PATIENT
  Age: 66 Year
  Sex: Male

DRUGS (11)
  1. FLUOROURACIL [Suspect]
     Indication: BASAL CELL CARCINOMA
     Route: 061
     Dates: start: 20110721, end: 20110729
  2. RAMIPRIL [Concomitant]
     Route: 048
  3. ASPIRIN [Concomitant]
     Route: 048
  4. IMDUR [Concomitant]
     Route: 048
  5. ATORVASTATIN [Concomitant]
     Route: 048
  6. ATENOLOL [Concomitant]
     Route: 048
  7. ATORVASTATIN [Concomitant]
     Route: 048
  8. ATORVASTATIN [Concomitant]
     Route: 048
  9. PANTOPRAZOLE [Concomitant]
     Indication: GASTRIC DISORDER
     Route: 048
  10. ATORVASTATIN [Concomitant]
     Indication: HYPERTENSION
     Route: 048
  11. CLOPIDOGREL [Concomitant]
     Route: 048

REACTIONS (5)
  - INFLAMMATION [None]
  - ERYTHEMA [None]
  - PAIN OF SKIN [None]
  - PHOTOSENSITIVITY REACTION [None]
  - RASH [None]
